FAERS Safety Report 8341526 (Version 2)
Quarter: 2012Q4

REPORT INFORMATION
  Report Type: Spontaneous
  Country: US (occurrence: None)
  Receive Date: 20111209
  Receipt Date: 20120608
  Transmission Date: 20130627
  Serious: Yes (Other)
  Sender: FDA-Public Use
  Company Number: TH-2011-00300

PATIENT
  Age: 60 Year
  Sex: Male
  Weight: 68 kg

DRUGS (2)
  1. EGRIFTA [Suspect]
     Indication: LIPODYSTROPHY ACQUIRED
     Dosage: 1 IN 1 D, SUBCUTANEOUS ; 1 IN 1 D, SUBCUTANEOUS
     Route: 058
     Dates: start: 201108
  2. EGRIFTA [Suspect]
     Indication: LIPODYSTROPHY ACQUIRED
     Dosage: 1 IN 1 D, SUBCUTANEOUS ; 1 IN 1 D, SUBCUTANEOUS
     Route: 058
     Dates: end: 201107

REACTIONS (4)
  - COLORECTAL CANCER STAGE IV [None]
  - ANOGENITAL DYSPLASIA [None]
  - SWELLING [None]
  - DYSURIA [None]
